FAERS Safety Report 9984607 (Version 1)
Quarter: 2014Q1

REPORT INFORMATION
  Report Type: Spontaneous
  Country: DE (occurrence: DE)
  Receive Date: 20140307
  Receipt Date: 20140307
  Transmission Date: 20141002
  Serious: Yes (Other)
  Sender: FDA-Public Use
  Company Number: DE-ACTAVIS-2014-03728

PATIENT
  Age: 43 Year
  Sex: Male

DRUGS (1)
  1. DIAZEPAM (UNKNOWN) [Suspect]
     Indication: SUICIDE ATTEMPT
     Dosage: 250 MG, SINGLE
     Route: 065

REACTIONS (11)
  - Parkinsonism [Recovering/Resolving]
  - Respiratory depression [Unknown]
  - Central nervous system necrosis [Unknown]
  - Hypoxia [Unknown]
  - Cyanosis [Unknown]
  - Encephalopathy [Unknown]
  - Somnolence [Unknown]
  - Hypotonia [Unknown]
  - Hypotension [Unknown]
  - Suicide attempt [Unknown]
  - Overdose [Unknown]
